FAERS Safety Report 14481850 (Version 1)
Quarter: 2018Q1

REPORT INFORMATION
  Report Type: Spontaneous
  Country: SI (occurrence: SI)
  Receive Date: 20180202
  Receipt Date: 20180202
  Transmission Date: 20180509
  Serious: Yes (Other)
  Sender: FDA-Public Use
  Company Number: SI-PFIZER INC-2018044297

PATIENT
  Age: 54 Year
  Sex: Male

DRUGS (6)
  1. ROSUVASTATIN. [Suspect]
     Active Substance: ROSUVASTATIN
     Dosage: UNK
     Route: 065
  2. RAMIPRIL. [Suspect]
     Active Substance: RAMIPRIL
     Dosage: UNK
     Route: 048
  3. BISOPROLOL FUMARATE. [Suspect]
     Active Substance: BISOPROLOL FUMARATE
     Dosage: UNK
     Route: 065
  4. FUROSEMIDE. [Suspect]
     Active Substance: FUROSEMIDE
     Dosage: 1 DF, UNK
     Route: 065
  5. ASPIRIN. [Suspect]
     Active Substance: ASPIRIN
     Dosage: UNK
     Route: 065
  6. FUROSEMIDE. [Suspect]
     Active Substance: FUROSEMIDE
     Dosage: 0.5 DF, UNK
     Route: 065

REACTIONS (7)
  - Fatigue [Recovering/Resolving]
  - Cough [Recovered/Resolved]
  - General physical health deterioration [Recovered/Resolved]
  - Dizziness [Recovering/Resolving]
  - Choking [Unknown]
  - Depression [Unknown]
  - Dyspnoea [Recovered/Resolved]
